FAERS Safety Report 17950202 (Version 2)
Quarter: 2020Q3

REPORT INFORMATION
  Report Type: Spontaneous
  Country: US (occurrence: US)
  Receive Date: 20200626
  Receipt Date: 20200715
  Transmission Date: 20201103
  Serious: Yes (Other)
  Sender: FDA-Public Use
  Company Number: US-009507513-2006USA006260

PATIENT
  Age: 60 Year
  Sex: Male

DRUGS (9)
  1. CEFTRIAXONE. [Concomitant]
     Active Substance: CEFTRIAXONE
     Indication: PNEUMONIA
     Dosage: UNK
  2. HEPARIN [Concomitant]
     Active Substance: HEPARIN SODIUM
     Dosage: 4000 UNITS OF UNFRACTIONATED HEPARIN
     Route: 042
  3. VANCOMYCIN [Concomitant]
     Active Substance: VANCOMYCIN
     Indication: PNEUMONIA
     Dosage: UNK
  4. INTEGRILIN [Suspect]
     Active Substance: EPTIFIBATIDE
     Dosage: 2 MICRO?G/KG/MIN INFUSION FRO 12 HOURS
     Route: 042
  5. TICAGRELOR. [Concomitant]
     Active Substance: TICAGRELOR
     Indication: ANTIPLATELET THERAPY
     Dosage: 180 MILLIGRAM (VIA OROGRASTIC TUBE)
  6. CEFEPIME [Concomitant]
     Active Substance: CEFEPIME HYDROCHLORIDE
     Indication: PNEUMONIA
  7. INTEGRILIN [Suspect]
     Active Substance: EPTIFIBATIDE
     Dosage: 180 MICRO?G/KG BOLUS
     Route: 042
  8. ASPIRIN. [Concomitant]
     Active Substance: ASPIRIN
     Indication: ANTIPLATELET THERAPY
     Dosage: 300 MILLIGRAM
     Route: 054
  9. HEPARIN [Concomitant]
     Active Substance: HEPARIN SODIUM
     Dosage: 4800 UNITS OF UNFRACTIONATED HEPARIN
     Route: 042

REACTIONS (2)
  - Immune thrombocytopenia [Recovered/Resolved]
  - Thrombosis [Recovered/Resolved]
